FAERS Safety Report 4515615-X (Version None)
Quarter: 2004Q4

REPORT INFORMATION
  Report Type: 
  Country: None (occurrence: None)
  Receive Date: 20040930
  Receipt Date: 20040819
  Transmission Date: 20050328
  Serious: No
  Sender: FDA-Public Use
  Company Number: USA-2004-0016490

PATIENT
  Age: 50 Year
  Sex: Male

DRUGS (1)
  1. SPECTRACEF [Suspect]
     Indication: BRONCHITIS
     Dosage: 400 MG, BID

REACTIONS (1)
  - DRUG INEFFECTIVE [None]
